FAERS Safety Report 7952002-6 (Version None)
Quarter: 2011Q4

REPORT INFORMATION
  Report Type: 
  Country: None (occurrence: None)
  Receive Date: 20111201
  Receipt Date: 20111129
  Transmission Date: 20120403
  Serious: Yes (Hospitalization, Other)
  Sender: FDA-Public Use
  Company Number: JP-PFIZER INC-2011170006

PATIENT
  Age: 74 Year
  Sex: Male
  Weight: 63.5 kg

DRUGS (7)
  1. RHEUMATREX [Suspect]
     Dosage: 4 MG, WEEKLY
     Route: 048
     Dates: start: 20110105, end: 20110321
  2. AZULFIDINE [Suspect]
     Dosage: 1000  MG, 1X/DAY
     Dates: start: 20110209, end: 20110321
  3. RHEUMATREX [Suspect]
     Indication: RHEUMATOID ARTHRITIS
     Dosage: 6 MG, WEEKLY
     Route: 048
     Dates: start: 20090601, end: 20100301
  4. PREDNISOLONE [Concomitant]
     Dosage: 5 MG, 1X/DAY
  5. AZULFIDINE [Suspect]
     Indication: RHEUMATOID ARTHRITIS
     Dosage: 500 MG, 1X/DAY
     Route: 048
     Dates: start: 20110112, end: 20110208
  6. RHEUMATREX [Suspect]
     Dosage: 8 MG, WEEKLY
     Route: 048
     Dates: start: 20100301, end: 20110104
  7. ETODOLAC [Concomitant]
     Dosage: UNK
     Dates: end: 20110321

REACTIONS (3)
  - ACUTE TONSILLITIS [None]
  - GRANULOCYTOPENIA [None]
  - DUODENAL ULCER [None]
